FAERS Safety Report 22075066 (Version 1)
Quarter: 2023Q1

REPORT INFORMATION
  Report Type: Report from Study
  Country: US (occurrence: US)
  Receive Date: 20230308
  Receipt Date: 20230308
  Transmission Date: 20230418
  Serious: Yes (Hospitalization, Other)
  Sender: FDA-Public Use
  Company Number: US-ABBVIE-4324313

PATIENT
  Age: 73 Year
  Sex: Female

DRUGS (28)
  1. IBRUTINIB [Suspect]
     Active Substance: IBRUTINIB
     Indication: Product used for unknown indication
     Route: 048
     Dates: start: 201511
  2. LASIX [Concomitant]
     Active Substance: FUROSEMIDE
     Indication: Product used for unknown indication
     Dosage: 40MG
  3. BENDAMUSTINE [Concomitant]
     Active Substance: BENDAMUSTINE
     Indication: Product used for unknown indication
     Dates: start: 201404
  4. Claritin-D 24 Hours [Concomitant]
     Indication: Product used for unknown indication
     Dosage: 10-240 MG TB24
     Route: 048
  5. HYDROCHLOROTHIAZIDE [Concomitant]
     Active Substance: HYDROCHLOROTHIAZIDE
     Indication: Product used for unknown indication
     Dosage: 25 MG
     Route: 048
  6. PROVENTIL HFA [Concomitant]
     Active Substance: ALBUTEROL SULFATE
     Indication: Product used for unknown indication
     Dosage: 90 MCG/ACTUATION INHALER INHALE 2 PUFF AS INSTRUCTED FOUR TIMES DAILY AS NEEDED
  7. TUMS [Concomitant]
     Active Substance: CALCIUM CARBONATE
     Indication: Product used for unknown indication
     Dosage: 500MG TAKE 1 TABLET BY MOUTH ONCE DAILY AS NEEDED (HEARTBURN)
     Route: 048
  8. FLONASE [Concomitant]
     Active Substance: FLUTICASONE PROPIONATE
     Indication: Product used for unknown indication
     Dosage: 50 MCG/ACTUATION NASAL SPRAY. USE 2 SPRAYS IN EACH NOSTRIL ONCE DAILY
  9. OMEPRAZOLE [Concomitant]
     Active Substance: OMEPRAZOLE
     Indication: Product used for unknown indication
     Dosage: 40 MG
  10. ATORVASTATIN [Concomitant]
     Active Substance: ATORVASTATIN
     Indication: Product used for unknown indication
     Dosage: 80 MG
  11. MOBIC [Concomitant]
     Active Substance: MELOXICAM
     Indication: Product used for unknown indication
     Dosage: 15MG TAKE 1 TABLET BY MOUTH EVERY DAY WITH FOOD
     Route: 048
  12. GAZYVA [Suspect]
     Active Substance: OBINUTUZUMAB
     Indication: Chronic lymphocytic leukaemia
     Dates: start: 201403, end: 201403
  13. BreoEllipta [Concomitant]
     Indication: Product used for unknown indication
     Dosage: 100-25MCG/DOSE INHALER. INHALE 1 INHALATION AS INSTRUCTED ONCE DAILY
  14. TYLENOL [Concomitant]
     Active Substance: ACETAMINOPHEN
     Indication: Product used for unknown indication
     Dosage: TAKE 500 MG BY MOUTH EVERY 8 HOURS AS NEEDED
     Route: 048
  15. VENCLEXTA [Suspect]
     Active Substance: VENETOCLAX
     Indication: Chronic lymphocytic leukaemia recurrent
     Route: 048
     Dates: start: 20210721
  16. LOPRESSOR [Concomitant]
     Active Substance: METOPROLOL TARTRATE
     Indication: Product used for unknown indication
     Dosage: 25MG TAKE 1 TABLET BY MOUTH TWICE DAILY
     Route: 048
  17. ZESTRIL [Concomitant]
     Active Substance: LISINOPRIL
     Indication: Product used for unknown indication
     Dosage: 20 MG
     Route: 048
  18. MIRALAX [Concomitant]
     Active Substance: POLYETHYLENE GLYCOL 3350
     Indication: Product used for unknown indication
     Dosage: TAKE 1 PACKET DAILY. 17MG DISSOLVE DOSE IN 4 - 8 OUNCE OF LIQUID AND TAKE AS DIRECTED
  19. SENNA-S [Concomitant]
     Active Substance: DOCUSATE SODIUM\SENNOSIDES
     Indication: Product used for unknown indication
     Dosage: 8.6-50 MG PER TABLET. TAKE 1 TABLET BY MOUTH TWICE DAILY AS NEEDED
  20. LIPITOR [Concomitant]
     Active Substance: ATORVASTATIN CALCIUM
     Indication: Product used for unknown indication
     Dosage: 40 MG TAKE 1 TABLET BY MOUTH EVERY DAY AT BEDTIME FOR CHOLESTEROL
     Route: 048
  21. ARICEPT [Concomitant]
     Active Substance: DONEPEZIL HYDROCHLORIDE
     Indication: Product used for unknown indication
  22. HYDRODIURIL [Concomitant]
     Active Substance: HYDROCHLOROTHIAZIDE
     Indication: Product used for unknown indication
     Dosage: TAKE 25 MG BY MOUTH DAILY
     Route: 048
  23. Zyrtec Oral [Concomitant]
     Indication: Product used for unknown indication
     Dosage: TAKE BY MOUTH AS NEEDED
     Route: 048
  24. FEBUXOSTAT [Concomitant]
     Active Substance: FEBUXOSTAT
     Indication: Product used for unknown indication
     Dosage: 80MG
  25. FEBUXOSTAT [Concomitant]
     Active Substance: FEBUXOSTAT
     Indication: Product used for unknown indication
     Dosage: 40MG. DAILY AT DISCHARGE
  26. XARELTO [Concomitant]
     Active Substance: RIVAROXABAN
     Indication: Product used for unknown indication
     Dosage: 20 MG TABLET
     Route: 048
  27. XARELTO [Concomitant]
     Active Substance: RIVAROXABAN
     Indication: Product used for unknown indication
     Dosage: 15MG
  28. RITUXAN [Concomitant]
     Active Substance: RITUXIMAB
     Indication: Product used for unknown indication
     Dates: start: 2014

REACTIONS (34)
  - Dementia [Not Recovered/Not Resolved]
  - Type V hyperlipidaemia [Not Recovered/Not Resolved]
  - Thyroid function test abnormal [Not Recovered/Not Resolved]
  - Impaired fasting glucose [Not Recovered/Not Resolved]
  - Bladder disorder [Not Recovered/Not Resolved]
  - Polyarthritis [Not Recovered/Not Resolved]
  - Urge incontinence [Not Recovered/Not Resolved]
  - Vitamin D deficiency [Not Recovered/Not Resolved]
  - Lymphocyte percentage increased [Unknown]
  - Oedema peripheral [Not Recovered/Not Resolved]
  - Weight increased [Not Recovered/Not Resolved]
  - Lymphadenopathy [Not Recovered/Not Resolved]
  - Chronic lymphocytic leukaemia recurrent [Not Recovered/Not Resolved]
  - Onychoclasis [Not Recovered/Not Resolved]
  - Night sweats [Unknown]
  - Nail ridging [Not Recovered/Not Resolved]
  - Deafness bilateral [Not Recovered/Not Resolved]
  - Varicose vein [Not Recovered/Not Resolved]
  - Dyspnoea [Recovering/Resolving]
  - Back pain [Not Recovered/Not Resolved]
  - Iridocyclitis [Not Recovered/Not Resolved]
  - Non-pitting oedema [Unknown]
  - Back pain [Not Recovered/Not Resolved]
  - Oedema peripheral [Unknown]
  - Essential hypertension [Not Recovered/Not Resolved]
  - Fatigue [Not Recovered/Not Resolved]
  - Decreased appetite [Unknown]
  - Bronchospasm [Unknown]
  - Otitis externa [Not Recovered/Not Resolved]
  - Tumour lysis syndrome [Not Recovered/Not Resolved]
  - Diverticulitis [Not Recovered/Not Resolved]
  - Delirium [Not Recovered/Not Resolved]
  - Deep vein thrombosis [Not Recovered/Not Resolved]
  - Oedema peripheral [Not Recovered/Not Resolved]

NARRATIVE: CASE EVENT DATE: 20140301
